FAERS Safety Report 26012472 (Version 3)
Quarter: 2025Q4

REPORT INFORMATION
  Report Type: Spontaneous
  Country: US (occurrence: US)
  Receive Date: 20251107
  Receipt Date: 20251224
  Transmission Date: 20260119
  Serious: Yes (Other)
  Sender: BRISTOL-MYERS SQUIBB COMPANY
  Company Number: US-BRISTOL-MYERS SQUIBB COMPANY-2025-151552

PATIENT
  Age: 75 Year
  Sex: Female
  Weight: 69.4 kg

DRUGS (22)
  1. REVLIMID [Suspect]
     Active Substance: LENALIDOMIDE
     Indication: Plasma cell myeloma
     Dosage: TAKE ONE CAPSULE BY MOUTH ONCE DAILY FOR 14 DAYS ON AND 7 DAYS OFF EVERY 21 DAYS?D1-14 C1-6 THEN D1-21; DEX IV/ PO; Q21 DAYS C1-6; Q28D C7+ BEYOND V10.0
     Route: 048
     Dates: start: 20251101, end: 20251102
  2. REVLIMID [Suspect]
     Active Substance: LENALIDOMIDE
     Route: 048
     Dates: start: 20251216, end: 20251216
  3. DARZALEX [Concomitant]
     Active Substance: DARATUMUMAB
     Indication: Product used for unknown indication
  4. VELCADE [Concomitant]
     Active Substance: BORTEZOMIB
     Indication: Plasma cell myeloma
     Dosage: D1, 4,8, 11 C1-6;
     Route: 058
  5. VELCADE [Concomitant]
     Active Substance: BORTEZOMIB
     Dosage: D1, 4,8, 11 C1-6;
     Route: 058
  6. DEXAMETHASONE [Concomitant]
     Active Substance: DEXAMETHASONE
     Indication: Plasma cell myeloma
     Dosage: TAKE 5 TABS FOR 5 DAYS IN A ROW WEEKLY
  7. ACYCLOVIR [Concomitant]
     Active Substance: ACYCLOVIR
     Indication: Product used for unknown indication
     Dosage: TAKE 1 P.O. TWICE A DAY (BID)
     Route: 048
  8. ALLOPURINOL [Concomitant]
     Active Substance: ALLOPURINOL
     Indication: Product used for unknown indication
     Dosage: TAKE 1 P.O. Q DAY AND TAKE FOR 2 WEEKS
     Route: 048
  9. DARZALEX FASPRO [Concomitant]
     Active Substance: DARATUMUMAB\HYALURONIDASE-FIHJ
     Indication: Plasma cell myeloma
     Dosage: D1, 8, 15?C1-4:D1 ?C5-12
     Route: 058
  10. ASPIRIN [Concomitant]
     Active Substance: ASPIRIN
     Indication: Product used for unknown indication
  11. ONDANSETRON HYDROCHLORIDE [Concomitant]
     Active Substance: ONDANSETRON HYDROCHLORIDE
     Indication: Product used for unknown indication
     Dosage: TAKE 1 TABLET 30 MINUTES PRIOR TO REVLIMID FOR THE 1ST 3-5 DAYS, THEN TAKE 1-2 TABLETS EVERY 8 HOURS AS NEEDED FOR NAUSEA.
  12. PROCHLORPERAZINE MALEATE [Concomitant]
     Active Substance: PROCHLORPERAZINE MALEATE
     Indication: Nausea
     Dosage: TAKE ONE TABLET EVERY 6 HOURS AS NEED FOR NAUSEA
  13. TYLENOL [Concomitant]
     Active Substance: ACETAMINOPHEN
     Indication: Product used for unknown indication
  14. BENADRYL [Concomitant]
     Active Substance: DIPHENHYDRAMINE HYDROCHLORIDE
     Indication: Product used for unknown indication
  15. GARAMYCIN [Concomitant]
     Active Substance: GENTAMICIN SULFATE
     Indication: Product used for unknown indication
     Route: 047
  16. MORPHINE [Concomitant]
     Active Substance: MORPHINE
     Indication: Product used for unknown indication
  17. MAGNESIUM [Concomitant]
     Active Substance: MAGNESIUM
     Indication: Product used for unknown indication
     Dosage: BY MOUTH DAILY, ?COMPLIANCE NOTES: STILL TAKING, AS PRESCRIBED
     Route: 048
  18. VITAMINS [Concomitant]
     Active Substance: VITAMINS
     Indication: Product used for unknown indication
     Dosage: 1 TAB, BY MOUTH DAILY, ?COMPLIANCE NOTES: STILL TAKING AS PRESCRIBED
     Route: 048
  19. PROTONIX [Concomitant]
     Active Substance: PANTOPRAZOLE SODIUM
     Indication: Gastric ulcer haemorrhage
     Dosage: 1 TAB, BY MOUTH, DAILY, DELAYED RELEASE ?COMPLIANCE NOTES: STILL TAKING, AS PRESCRIBED
     Route: 048
  20. HERBALS\TURMERIC [Concomitant]
     Active Substance: HERBALS\TURMERIC
     Indication: Product used for unknown indication
     Dosage: BY MOUTH, DAILY ?COMPLIANCE COMMENTS: STILL TAKING AS PRESCRIBED
     Route: 048
  21. VITAMIN C [Concomitant]
     Active Substance: ASCORBIC ACID
     Indication: Product used for unknown indication
     Dosage: 1 TAB DAILY, BY MOUTH ?COMPLIANCE COMMENTS: STILL TAKING AS PRESCRIBED
     Route: 048
  22. MONTELUKAST [Concomitant]
     Active Substance: MONTELUKAST
     Indication: Product used for unknown indication
     Dosage: TAKE 1 TABLET BY MOUTH TODAY AND TOMORROW

REACTIONS (12)
  - Gait disturbance [Recovered/Resolved]
  - Palpitations [Recovered/Resolved]
  - Chest pain [Recovered/Resolved]
  - Fatigue [Recovered/Resolved]
  - Limb discomfort [Recovered/Resolved]
  - Syncope [Unknown]
  - Sensory disturbance [Unknown]
  - Pain [Recovered/Resolved]
  - Hyperhidrosis [Recovered/Resolved]
  - Ear discomfort [Recovered/Resolved]
  - Chest discomfort [Recovered/Resolved]
  - Discomfort [Recovered/Resolved]

NARRATIVE: CASE EVENT DATE: 20250101
